FAERS Safety Report 15399940 (Version 1)
Quarter: 2018Q3

REPORT INFORMATION
  Report Type: Report from Study
  Country: None (occurrence: IE)
  Receive Date: 20180919
  Receipt Date: 20180919
  Transmission Date: 20181010
  Serious: Yes (Other)
  Sender: FDA-Public Use
  Company Number: IE-ABBVIE-18K-229-2486649-00

PATIENT
  Age: 54 Year
  Sex: Male

DRUGS (3)
  1. HUMIRA [Suspect]
     Active Substance: ADALIMUMAB
     Dosage: DAY 15
     Route: 058
     Dates: start: 2016, end: 2016
  2. HUMIRA [Suspect]
     Active Substance: ADALIMUMAB
     Indication: CROHN^S DISEASE
     Dosage: DAY 1
     Route: 058
     Dates: start: 20160516, end: 20160516
  3. HUMIRA [Suspect]
     Active Substance: ADALIMUMAB
     Route: 058
     Dates: start: 2016, end: 201801

REACTIONS (5)
  - Brain oedema [Not Recovered/Not Resolved]
  - Apparent death [Recovering/Resolving]
  - Disseminated tuberculosis [Recovering/Resolving]
  - Exposure to communicable disease [Unknown]
  - Secondary immunodeficiency [Recovering/Resolving]

NARRATIVE: CASE EVENT DATE: 201801
